FAERS Safety Report 24523853 (Version 1)
Quarter: 2024Q4

REPORT INFORMATION
  Report Type: Spontaneous
  Country: GB (occurrence: GB)
  Receive Date: 20241018
  Receipt Date: 20241018
  Transmission Date: 20250114
  Serious: Yes (Hospitalization, Other)
  Sender: GILEAD
  Company Number: GB-GILEAD-2024-0690758

PATIENT
  Age: 67 Year
  Sex: Male

DRUGS (2)
  1. YESCARTA [Suspect]
     Active Substance: AXICABTAGENE CILOLEUCEL
     Indication: Diffuse large B-cell lymphoma
     Dosage: UNK
     Route: 042
     Dates: start: 20240222, end: 20240222
  2. METFORMIN [Concomitant]
     Active Substance: METFORMIN HYDROCHLORIDE

REACTIONS (2)
  - Bacterial sepsis [Recovered/Resolved]
  - Cytopenia [Recovered/Resolved]

NARRATIVE: CASE EVENT DATE: 20240316
